FAERS Safety Report 4560979-4 (Version None)
Quarter: 2005Q1

REPORT INFORMATION
  Report Type: 
  Country: None (occurrence: None)
  Receive Date: 20050126
  Receipt Date: 20040428
  Transmission Date: 20050727
  Serious: No
  Sender: FDA-Public Use
  Company Number: US-BRISTOL-MYERS SQUIBB COMPANY-12573192

PATIENT
  Age: 70 Year
  Sex: Female
  Weight: 73 kg

DRUGS (7)
  1. GLUCOPHAGE [Suspect]
     Indication: DIABETES MELLITUS
     Route: 048
  2. NOVOLIN 70/30 [Concomitant]
  3. PLAVIX [Concomitant]
  4. NEXIUM [Concomitant]
  5. DIOVAN [Concomitant]
  6. LIPITOR [Concomitant]
  7. ACEBUTOLOL [Concomitant]

REACTIONS (2)
  - DRUG INEFFECTIVE [None]
  - WEIGHT INCREASED [None]
